FAERS Safety Report 6109017-2 (Version None)
Quarter: 2009Q1

REPORT INFORMATION
  Report Type: 
  Country: None (occurrence: None)
  Receive Date: 20090306
  Receipt Date: 20090225
  Transmission Date: 20090719
  Serious: Yes (Disabling, Other)
  Sender: FDA-Public Use
  Company Number: GXKR2009AU02413

PATIENT
  Age: 55 Year
  Sex: Female

DRUGS (4)
  1. CLOZAPINE [Suspect]
     Indication: SCHIZOPHRENIA
     Dosage: 800 MG, DAILY
  2. LITHIUM CARBONATE [Concomitant]
  3. LEVOTHYROXINE SODIUM [Concomitant]
  4. OMEPRAZOLE [Concomitant]

REACTIONS (7)
  - BLINDNESS [None]
  - CATARACT NUCLEAR [None]
  - CATARACT SUBCAPSULAR [None]
  - CORNEAL PIGMENTATION [None]
  - MACULOPATHY [None]
  - PIGMENTATION DISORDER [None]
  - RETINOPATHY [None]
